FAERS Safety Report 7014411-1 (Version None)
Quarter: 2010Q3

REPORT INFORMATION
  Report Type: 
  Country: None (occurrence: None)
  Receive Date: 20100927
  Receipt Date: 20100914
  Transmission Date: 20110219
  Serious: Yes (Death)
  Sender: FDA-Public Use
  Company Number: US-ELI_LILLY_AND_COMPANY-US201009003682

PATIENT
  Age: 4 Year
  Sex: Female
  Weight: 43.991 kg

DRUGS (3)
  1. ZYPREXA [Suspect]
     Dosage: 15 MG, UNK
  2. INTUNIV [Concomitant]
     Dosage: 2 MG, UNK
  3. CLARITIN [Concomitant]

REACTIONS (3)
  - DEATH [None]
  - OFF LABEL USE [None]
  - WHEEZING [None]
